FAERS Safety Report 8417494-7 (Version None)
Quarter: 2012Q2

REPORT INFORMATION
  Report Type: 
  Country: None (occurrence: None)
  Receive Date: 20120606
  Receipt Date: 20120531
  Transmission Date: 20120825
  Serious: Yes (Other)
  Sender: FDA-Public Use
  Company Number: FR-B.I. PHARMACEUTICALS,INC./RIDGEFIELD-2012-EU-02991BY

PATIENT
  Sex: Female

DRUGS (1)
  1. TELMISARTAN AND HYDROCHLOROTHIAZIDE [Suspect]
     Dosage: 80/25 MG
     Route: 065

REACTIONS (5)
  - LETHARGY [None]
  - DEPRESSION [None]
  - VISUAL IMPAIRMENT [None]
  - NAUSEA [None]
  - DECREASED APPETITE [None]
